FAERS Safety Report 23306557 (Version 1)
Quarter: 2023Q4

REPORT INFORMATION
  Report Type: Report from Study
  Country: US (occurrence: US)
  Receive Date: 20231218
  Receipt Date: 20231218
  Transmission Date: 20240110
  Serious: Yes (Hospitalization)
  Sender: FDA-Public Use
  Company Number: US-ORPHANEU-2023008821

PATIENT

DRUGS (2)
  1. CARBAGLU [Suspect]
     Active Substance: CARGLUMIC ACID
     Indication: Methylmalonic acidaemia
     Dosage: DISSOLVE THREE AND ONE-HALF TABLETS IN 2.5 ML OF WATER PER TABLET
     Route: 048
     Dates: start: 202001
  2. CEPHALEXIN [Concomitant]
     Active Substance: CEPHALEXIN
     Indication: Product used for unknown indication
     Dosage: UNK (125 MG/5 ML, SUSP RECON)

REACTIONS (2)
  - Decreased appetite [Unknown]
  - Hospitalisation [Unknown]
